FAERS Safety Report 6767848-X (Version None)
Quarter: 2010Q2

REPORT INFORMATION
  Report Type: 
  Country: None (occurrence: None)
  Receive Date: 20100610
  Receipt Date: 20100531
  Transmission Date: 20101027
  Serious: Yes (Other)
  Sender: FDA-Public Use
  Company Number: 011942

PATIENT
  Sex: Male
  Weight: 85 kg

DRUGS (1)
  1. PROSTAVASIN /00501501/ (PROSTAVASIN) [Suspect]
     Indication: ARTERIAL OCCLUSIVE DISEASE
     Dosage: (40 MG BID, CVK : TYPE OF APPLICATION. PATIENT RECEIVED 13 INJECTIONS.)
     Dates: start: 20100414, end: 20100428

REACTIONS (10)
  - CARDIOMEGALY [None]
  - CONGESTIVE CARDIOMYOPATHY [None]
  - HAEMOGLOBIN DECREASED [None]
  - HYPOTONIA [None]
  - OEDEMA PERIPHERAL [None]
  - ORTHOPNOEA [None]
  - OSTEOPOROSIS [None]
  - PULMONARY CONGESTION [None]
  - RIB FRACTURE [None]
  - WEIGHT INCREASED [None]
